FAERS Safety Report 16663295 (Version 1)
Quarter: 2019Q3

REPORT INFORMATION
  Report Type: Report from Study
  Country: CA (occurrence: CA)
  Receive Date: 20190802
  Receipt Date: 20190802
  Transmission Date: 20191004
  Serious: No
  Sender: FDA-Public Use
  Company Number: CA-EXELIXIS-CABO-19019985

PATIENT
  Age: 67 Year
  Sex: Male

DRUGS (2)
  1. CABOMETYX [Suspect]
     Active Substance: CABOZANTINIB S-MALATE
     Indication: RENAL CELL CARCINOMA
     Dosage: 60 MG, QD
     Route: 048
     Dates: start: 20181023
  2. CABOMETYX [Suspect]
     Active Substance: CABOZANTINIB S-MALATE
     Dosage: TOOK HALF A TABLET OF 60 MG BY CHEWING
     Route: 048
     Dates: start: 20190327, end: 20190329

REACTIONS (5)
  - Nausea [Recovered/Resolved]
  - Decreased appetite [Unknown]
  - Abdominal pain upper [Recovered/Resolved]
  - Adverse drug reaction [Unknown]
  - Wrong technique in product usage process [Unknown]

NARRATIVE: CASE EVENT DATE: 20190327
